FAERS Safety Report 24673539 (Version 1)
Quarter: 2024Q4

REPORT INFORMATION
  Report Type: Spontaneous
  Country: US (occurrence: US)
  Receive Date: 20241128
  Receipt Date: 20241128
  Transmission Date: 20250115
  Serious: No
  Sender: TEVA
  Company Number: US-TEVA-VS-3264434

PATIENT
  Age: 75 Year
  Sex: Female

DRUGS (1)
  1. AUSTEDO [Suspect]
     Active Substance: DEUTETRABENAZINE
     Indication: Dyskinesia
     Dosage: TAKE ONE TABLET
     Route: 048
     Dates: start: 20230419

REACTIONS (3)
  - Illness [Unknown]
  - Drug ineffective [Unknown]
  - Product use issue [Unknown]
